FAERS Safety Report 15155119 (Version 1)
Quarter: 2018Q3

REPORT INFORMATION
  Report Type: Spontaneous
  Country: IT (occurrence: IT)
  Receive Date: 20180717
  Receipt Date: 20180717
  Transmission Date: 20181010
  Serious: Yes (Life-Threatening)
  Sender: FDA-Public Use
  Company Number: IT-FRESENIUS KABI-FK201807887

PATIENT
  Age: 16 Year
  Sex: Female

DRUGS (4)
  1. METHYLPREDNISOLONE (MANUFACTURER UNKNOWN) [Suspect]
     Active Substance: METHYLPREDNISOLONE
     Indication: IMMUNOSUPPRESSION
     Dosage: BOLUS DOSE GIVEN INTRA?OPERATIVELY
  2. METHYLPREDNISOLONE (MANUFACTURER UNKNOWN) [Suspect]
     Active Substance: METHYLPREDNISOLONE
     Dosage: 2 MG/KG (MAXIMUM 20 MG) ONCE DAILY WITH PROGRESSIVE TAPERING
     Route: 042
  3. TACROLIMUS. [Suspect]
     Active Substance: TACROLIMUS
     Indication: IMMUNOSUPPRESSION
     Route: 048
  4. FLUCONAZOLE. [Concomitant]
     Active Substance: FLUCONAZOLE
     Indication: ANTIFUNGAL PROPHYLAXIS
     Route: 042

REACTIONS (8)
  - Shock haemorrhagic [Unknown]
  - Infective aneurysm [Recovered/Resolved]
  - Septic shock [Unknown]
  - Hepatic artery aneurysm [Recovered/Resolved]
  - Enterococcal infection [Unknown]
  - Candida infection [Recovered/Resolved]
  - Pseudomonas infection [Recovered/Resolved]
  - Acute hepatic failure [Unknown]
